FAERS Safety Report 14537474 (Version 4)
Quarter: 2018Q1

REPORT INFORMATION
  Report Type: Spontaneous
  Country: US (occurrence: US)
  Receive Date: 20180215
  Receipt Date: 20180301
  Transmission Date: 20180509
  Serious: Yes (Hospitalization)
  Sender: FDA-Public Use
  Company Number: US-ACTELION-A-NJ2018-167690

PATIENT
  Age: 75 Year
  Sex: Male

DRUGS (1)
  1. VALCHLOR [Suspect]
     Active Substance: MECHLORETHAMINE
     Indication: MYCOSIS FUNGOIDES
     Dosage: UNK
     Route: 061
     Dates: start: 20180131

REACTIONS (9)
  - Skin wound [Unknown]
  - Asthenia [Unknown]
  - Skin induration [Unknown]
  - Skin exfoliation [Unknown]
  - Pruritus [Unknown]
  - Skin burning sensation [Unknown]
  - Pain of skin [Unknown]
  - Therapy non-responder [Unknown]
  - Pain [Unknown]
